FAERS Safety Report 5711611-5 (Version None)
Quarter: 2008Q2

REPORT INFORMATION
  Report Type: 
  Country: None (occurrence: None)
  Receive Date: 20080421
  Receipt Date: 20080410
  Transmission Date: 20081010
  Serious: Yes (Other)
  Sender: FDA-Public Use
  Company Number: GB-ASTRAZENECA-2008AC00901

PATIENT

DRUGS (1)
  1. ESOMEPRAZOLE [Suspect]
     Route: 048

REACTIONS (3)
  - BLEPHARITIS [None]
  - VISUAL ACUITY REDUCED [None]
  - VISUAL FIELD DEFECT [None]
